FAERS Safety Report 8702522 (Version 2)
Quarter: 2012Q4

REPORT INFORMATION
  Report Type: 
  Country: US (occurrence: US)
  Receive Date: 20120803
  Receipt Date: 20120904
  Transmission Date: 20130627
  Serious: No
  Sender: FDA-Public Use
  Company Number: US-PFIZER INC-2012183966

PATIENT
  Age: 50 Year
  Sex: Female

DRUGS (1)
  1. EPIPEN [Suspect]
     Dosage: UNK

REACTIONS (2)
  - Accidental exposure to product [Unknown]
  - Injection site discolouration [Unknown]
